FAERS Safety Report 6236671-7 (Version None)
Quarter: 2009Q2

REPORT INFORMATION
  Report Type: 
  Country: None (occurrence: None)
  Receive Date: 20090619
  Receipt Date: 20090127
  Transmission Date: 20091009
  Serious: No
  Sender: FDA-Public Use
  Company Number: US-ASTRAZENECA-2009UW02393

PATIENT
  Age: 85 Year
  Sex: Female

DRUGS (15)
  1. ATACAND [Suspect]
     Indication: HEART RATE INCREASED
     Route: 048
  2. METOPROLOL SUCCINATE [Concomitant]
  3. VITAMIN D [Concomitant]
  4. LASIX [Concomitant]
  5. PRAVACHOL [Concomitant]
  6. ASPIRIN [Concomitant]
  7. AMARYL [Concomitant]
  8. METOLAZONE [Concomitant]
  9. HYDRAZALINE [Concomitant]
  10. SINGULAIR [Concomitant]
  11. SPIRONOLACTONE [Concomitant]
  12. SYMBICORT [Concomitant]
  13. DUONEB [Concomitant]
  14. ALPROZLIN [Concomitant]
  15. ISOSORBIDE [Concomitant]

REACTIONS (2)
  - FOOT DEFORMITY [None]
  - MUSCLE SPASMS [None]
